FAERS Safety Report 10094231 (Version 2)
Quarter: 2014Q2

REPORT INFORMATION
  Report Type: Spontaneous
  Country: US (occurrence: None)
  Receive Date: 20140418
  Receipt Date: 20140422
  Transmission Date: 20141212
  Serious: Yes (Death, Other)
  Sender: FDA-Public Use
  Company Number: 2290968

PATIENT
  Sex: Female

DRUGS (1)
  1. HYDROMORPHONE HYDROCHLORIDE [Suspect]
     Indication: PRODUCT USED FOR UNKNOWN INDICATION
     Dosage: .2 MG/HR CONTINUOUS AND .2 MG BOLUS ON AN 8 MINUTE LOCKOUT INTERVAL AND A 1 HOUR LIMIT OF 1.6 MQ/HR.
     Route: 040
     Dates: start: 20140227

REACTIONS (6)
  - Device malfunction [None]
  - Cardio-respiratory arrest [None]
  - Sedation [None]
  - Unresponsive to stimuli [None]
  - Incorrect dose administered [None]
  - Incorrect drug administration duration [None]
